FAERS Safety Report 5149045-7 (Version None)
Quarter: 2006Q4

REPORT INFORMATION
  Report Type: 
  Country: None (occurrence: None)
  Receive Date: 20061113
  Receipt Date: 20061103
  Transmission Date: 20070319
  Serious: Yes (Hospitalization)
  Sender: FDA-Public Use
  Company Number: IT-JNJFOC-20061101039

PATIENT
  Sex: Female

DRUGS (10)
  1. SPORANOX [Suspect]
     Indication: FUNGAL SKIN INFECTION
     Route: 048
     Dates: start: 20060612, end: 20060627
  2. ACTOS [Suspect]
     Indication: DIABETES MELLITUS
     Route: 048
     Dates: start: 20060502, end: 20060627
  3. TENORIM [Concomitant]
     Route: 065
  4. ELOPRAM [Concomitant]
     Route: 065
  5. XANAX [Concomitant]
     Route: 065
  6. ESKIM [Concomitant]
     Route: 065
  7. INEGY [Concomitant]
     Route: 065
  8. ENAPREN [Concomitant]
     Route: 065
  9. TRITTICO [Concomitant]
     Route: 065
  10. ASPIRIN [Concomitant]
     Route: 065

REACTIONS (2)
  - ACUTE CORONARY SYNDROME [None]
  - ACUTE PULMONARY OEDEMA [None]
